FAERS Safety Report 16078435 (Version 2)
Quarter: 2019Q2

REPORT INFORMATION
  Report Type: Report from Study
  Country: US (occurrence: US)
  Receive Date: 20190315
  Receipt Date: 20190401
  Transmission Date: 20190711
  Serious: Yes (Death)
  Sender: FDA-Public Use
  Company Number: US-PUMA BIOTECHNOLOGY, LTD.-2019US001036

PATIENT

DRUGS (6)
  1. NERLYNX [Suspect]
     Active Substance: NERATINIB
     Indication: BREAST CANCER FEMALE
     Dosage: 240 MG, DAILY
     Route: 048
     Dates: start: 20190125, end: 20190206
  2. NERLYNX [Suspect]
     Active Substance: NERATINIB
     Dosage: 200 MG, DAILY
     Route: 048
     Dates: start: 2019, end: 201902
  3. NERLYNX [Suspect]
     Active Substance: NERATINIB
     Dosage: 160 MG 4 TABLETS, DAILY
     Route: 048
     Dates: start: 201902, end: 201902
  4. IMODIUM [Concomitant]
     Active Substance: LOPERAMIDE HYDROCHLORIDE
     Indication: PROPHYLAXIS AGAINST DIARRHOEA
  5. NERLYNX [Suspect]
     Active Substance: NERATINIB
     Indication: METASTASES TO LIVER
     Dosage: 120 MG, DAILY
     Route: 048
     Dates: start: 20190207, end: 201902
  6. NERLYNX [Suspect]
     Active Substance: NERATINIB
     Indication: METASTASES TO CENTRAL NERVOUS SYSTEM
     Dosage: 180 MG, DAILY
     Route: 048
     Dates: start: 201902, end: 201902

REACTIONS (13)
  - Off label use [Unknown]
  - Dizziness [Unknown]
  - Blood potassium decreased [Unknown]
  - Diarrhoea [Not Recovered/Not Resolved]
  - Metastases to central nervous system [Unknown]
  - Disease progression [Fatal]
  - Malaise [Unknown]
  - Nausea [Recovered/Resolved]
  - Vomiting [Recovered/Resolved]
  - Metastases to liver [Unknown]
  - Asthenia [Unknown]
  - Drug intolerance [Unknown]
  - Dehydration [Not Recovered/Not Resolved]

NARRATIVE: CASE EVENT DATE: 2019
